FAERS Safety Report 24124456 (Version 1)
Quarter: 2024Q3

REPORT INFORMATION
  Report Type: Other
  Country: CN (occurrence: CN)
  Receive Date: 20240723
  Receipt Date: 20240723
  Transmission Date: 20241017
  Serious: Yes (Other)
  Sender: OWLPHARMA CONSULTING
  Company Number: CN-Owlpharma Consulting, Lda.-2159457

PATIENT
  Age: 37 Year
  Sex: Female

DRUGS (7)
  1. PYRIDOSTIGMINE [Suspect]
     Active Substance: PYRIDOSTIGMINE
     Indication: Myasthenia gravis
     Route: 065
     Dates: start: 201108
  2. PREDNISONE [Suspect]
     Active Substance: PREDNISONE
     Route: 065
  3. CYCLOSPORINE [Concomitant]
     Active Substance: CYCLOSPORINE
     Route: 065
  4. MYCOPHENOLATE MOFETIL [Concomitant]
     Active Substance: MYCOPHENOLATE MOFETIL
     Route: 065
  5. AZATHIOPRINE [Concomitant]
     Active Substance: AZATHIOPRINE
     Route: 065
  6. RITUXIMAB [Concomitant]
     Active Substance: RITUXIMAB
     Route: 065
  7. TACROLIMUS [Concomitant]
     Active Substance: TACROLIMUS
     Route: 065

REACTIONS (6)
  - Hyperprolactinaemia [Unknown]
  - Anal fistula [Unknown]
  - Venous thrombosis limb [Unknown]
  - Myelosuppression [Unknown]
  - Hyperlipidaemia [Unknown]
  - Hyperglycaemia [Unknown]
